FAERS Safety Report 8385809-4 (Version None)
Quarter: 2012Q2

REPORT INFORMATION
  Report Type: 
  Country: None (occurrence: None)
  Receive Date: 20120525
  Receipt Date: 20120519
  Transmission Date: 20120825
  Serious: Yes (Hospitalization)
  Sender: FDA-Public Use
  Company Number: US-BAYER-2011-098656

PATIENT
  Age: 36 Year
  Sex: Female
  Weight: 74.83 kg

DRUGS (9)
  1. SINGULAIR [Concomitant]
     Dosage: UNK UNK, PRN
     Dates: start: 20100322
  2. SUDAFED 12 HOUR [Concomitant]
  3. BENADRYL [Concomitant]
     Dosage: UNK UNK, PRN
     Dates: start: 20100322
  4. TYLENOL [Concomitant]
  5. BISMUTH SUBSALICYLATE [Concomitant]
  6. YAZ [Suspect]
     Indication: CONTRACEPTION
     Dosage: UNK, QD
     Route: 048
     Dates: start: 20081101, end: 20100301
  7. YAZ [Suspect]
     Indication: PREMENSTRUAL SYNDROME
  8. ALLEGRA-D 12 HOUR [Concomitant]
     Dosage: UNK UNK, PRN
     Dates: start: 20100322
  9. LOESTRIN 1.5/30 [Concomitant]
     Dosage: UNK
     Dates: start: 20100322

REACTIONS (8)
  - DYSPEPSIA [None]
  - DIARRHOEA [None]
  - ABDOMINAL PAIN [None]
  - CHOLECYSTITIS [None]
  - HEADACHE [None]
  - VOMITING [None]
  - MUSCLE SPASMS [None]
  - ABDOMINAL DISTENSION [None]
